FAERS Safety Report 7570350-9 (Version None)
Quarter: 2011Q2

REPORT INFORMATION
  Report Type: 
  Country: None (occurrence: None)
  Receive Date: 20110624
  Receipt Date: 20110609
  Transmission Date: 20111010
  Serious: Yes (Hospitalization)
  Sender: FDA-Public Use
  Company Number: JP-WATSON-2011-09123

PATIENT
  Age: 70 Year
  Sex: Male

DRUGS (1)
  1. PREDNISOLONE [Suspect]
     Indication: ORGANISING PNEUMONIA

REACTIONS (2)
  - ASPERGILLOMA [None]
  - PULMONARY NECROSIS [None]
